FAERS Safety Report 5757420-2 (Version None)
Quarter: 2008Q2

REPORT INFORMATION
  Report Type: 
  Country: None (occurrence: None)
  Receive Date: 20080529
  Receipt Date: 20080520
  Transmission Date: 20081010
  Serious: Yes (Other)
  Sender: FDA-Public Use
  Company Number: CHNY2008BR01198

PATIENT
  Age: 40 Year
  Sex: Female
  Weight: 96 kg

DRUGS (1)
  1. CIBALENAA (NCH) (CAFFEINE CITRATE, ACETYLSALICYLIC ACID, ACETAMINOPHEN [Suspect]
     Indication: HEADACHE
     Dosage: 2 DF, ORAL
     Route: 048
     Dates: start: 20080307

REACTIONS (2)
  - BLOOD PRESSURE INCREASED [None]
  - NERVOUS SYSTEM DISORDER [None]
